FAERS Safety Report 9055663 (Version 2)
Quarter: 2013Q1

REPORT INFORMATION
  Report Type: Spontaneous
  Country: FR (occurrence: FR)
  Receive Date: 20130206
  Receipt Date: 20130213
  Transmission Date: 20140127
  Serious: Yes (Other)
  Sender: FDA-Public Use
  Company Number: FR-JNJFOC-20130116952

PATIENT
  Age: 56 Year
  Sex: Female

DRUGS (3)
  1. SIMPONI [Suspect]
     Indication: SPONDYLITIS
     Dosage: SECOND INJECTION
     Route: 058
  2. SIMPONI [Suspect]
     Indication: SPONDYLITIS
     Route: 058
     Dates: start: 2012
  3. MULTIPLE MEDICATIONS (UNSPECIFIED) [Concomitant]
     Indication: DEPRESSION
     Route: 065

REACTIONS (1)
  - Dysaesthesia [Recovering/Resolving]
